FAERS Safety Report 11524877 (Version 1)
Quarter: 2015Q3

REPORT INFORMATION
  Report Type: Spontaneous
  Country: US (occurrence: US)
  Receive Date: 20150918
  Receipt Date: 20150918
  Transmission Date: 20151125
  Serious: No
  Sender: FDA-Public Use
  Company Number: US-ROCHE-755532

PATIENT
  Sex: Male

DRUGS (2)
  1. PEGASYS [Suspect]
     Active Substance: PEGINTERFERON ALFA-2A
     Indication: HEPATITIS C
     Route: 058
  2. COPEGUS [Suspect]
     Active Substance: RIBAVIRIN
     Indication: HEPATITIS C
     Route: 048

REACTIONS (14)
  - Arthralgia [Not Recovered/Not Resolved]
  - Personality change [Unknown]
  - Feeling abnormal [Not Recovered/Not Resolved]
  - Malaise [Unknown]
  - Non-consummation [Unknown]
  - Fatigue [Not Recovered/Not Resolved]
  - Prostatic disorder [Unknown]
  - Infection [Unknown]
  - Impaired work ability [Unknown]
  - Visual impairment [Unknown]
  - Activities of daily living impaired [Unknown]
  - Attention deficit/hyperactivity disorder [Unknown]
  - Dysarthria [Unknown]
  - Poverty of thought content [Unknown]
